FAERS Safety Report 4975429-3 (Version None)
Quarter: 2006Q2

REPORT INFORMATION
  Report Type: 
  Country: None (occurrence: None)
  Receive Date: 20060418
  Receipt Date: 20051129
  Transmission Date: 20061013
  Serious: Yes (Hospitalization, Disabling)
  Sender: FDA-Public Use
  Company Number: US-MERCK-0511USA04495

PATIENT
  Age: 46 Year
  Sex: Male
  Weight: 77 kg

DRUGS (1)
  1. VIOXX [Suspect]
     Indication: ARTHRALGIA
     Route: 048
     Dates: start: 20001228, end: 20031120

REACTIONS (7)
  - BRAIN STEM INFARCTION [None]
  - GLUCOSE TOLERANCE IMPAIRED [None]
  - GOUT [None]
  - HYPERLIPIDAEMIA [None]
  - HYPERTENSION [None]
  - SINUSITIS [None]
  - SKELETAL INJURY [None]
